FAERS Safety Report 11074077 (Version 1)
Quarter: 2015Q2

REPORT INFORMATION
  Report Type: Spontaneous
  Country: US (occurrence: None)
  Receive Date: 20150428
  Receipt Date: 20150428
  Transmission Date: 20150821
  Serious: Yes (Death, Hospitalization)
  Sender: FDA-Public Use
  Company Number: None

PATIENT
  Age: 50 Year
  Sex: Male
  Weight: 94 kg

DRUGS (3)
  1. BEVACIZUMAB [Suspect]
     Active Substance: BEVACIZUMAB
     Dates: end: 20150316
  2. CARBOPLATIN. [Suspect]
     Active Substance: CARBOPLATIN
     Dates: end: 20150316
  3. TAXOL [Suspect]
     Active Substance: PACLITAXEL
     Dates: end: 20150316

REACTIONS (8)
  - Arterial rupture [None]
  - Tumour compression [None]
  - Pyrexia [None]
  - Pain [None]
  - Agonal rhythm [None]
  - Haemoptysis [None]
  - Cardio-respiratory arrest [None]
  - Pulmonary hilum mass [None]

NARRATIVE: CASE EVENT DATE: 20150424
